FAERS Safety Report 23387267 (Version 2)
Quarter: 2024Q1

REPORT INFORMATION
  Report Type: Report from Study
  Country: MX (occurrence: MX)
  Receive Date: 20240110
  Receipt Date: 20240201
  Transmission Date: 20240409
  Serious: Yes (Other)
  Sender: FDA-Public Use
  Company Number: MX-AstraZeneca-2023A260244

PATIENT
  Age: 24 Week
  Sex: Female
  Weight: 5.4 kg

DRUGS (5)
  1. SYNAGIS [Suspect]
     Active Substance: PALIVIZUMAB
     Indication: Respiratory syncytial virus immunisation
     Dosage: 0.74 ML, MONTHLY
     Route: 030
     Dates: start: 20231109, end: 20231109
  2. SYNAGIS [Suspect]
     Active Substance: PALIVIZUMAB
     Dosage: 0.81 ML, MONTHLY
     Route: 030
     Dates: start: 20231109, end: 20231207
  3. SYNAGIS [Suspect]
     Active Substance: PALIVIZUMAB
     Dosage: 0.81 ML, MONTHLY
     Route: 030
     Dates: start: 20231207, end: 20231207
  4. CAPTOPRIL [Concomitant]
     Active Substance: CAPTOPRIL
     Indication: Product used for unknown indication
  5. HYDROCHLOROTHIAZIDE [Concomitant]
     Active Substance: HYDROCHLOROTHIAZIDE
     Indication: Product used for unknown indication

REACTIONS (8)
  - Pulmonary congestion [Recovered/Resolved]
  - Lower respiratory tract congestion [Recovered/Resolved]
  - Lung disorder [Not Recovered/Not Resolved]
  - Bronchial disorder [Not Recovered/Not Resolved]
  - Wheezing [Recovered/Resolved]
  - Productive cough [Recovered/Resolved]
  - Influenza [Recovered/Resolved]
  - Crying [Recovered/Resolved]

NARRATIVE: CASE EVENT DATE: 20231109
